FAERS Safety Report 22159394 (Version 4)
Quarter: 2024Q4

REPORT INFORMATION
  Report Type: Report from Study
  Country: US (occurrence: US)
  Receive Date: 20230331
  Receipt Date: 20241007
  Transmission Date: 20250114
  Serious: Yes (Hospitalization, Other)
  Sender: ABBVIE
  Company Number: US-ABBVIE-4711321

PATIENT
  Sex: Female
  Weight: 96.161 kg

DRUGS (17)
  1. RINVOQ [Suspect]
     Active Substance: UPADACITINIB
     Indication: Eczema
     Dosage: FORM STRENGTH 30 MG
     Route: 048
     Dates: start: 2022, end: 2024
  2. RINVOQ [Suspect]
     Active Substance: UPADACITINIB
     Indication: Eczema
     Dosage: FORM STRENGTH 15 MILLIGRAM
     Route: 048
     Dates: start: 2024, end: 202407
  3. RINVOQ [Suspect]
     Active Substance: UPADACITINIB
     Indication: Eczema
     Dosage: FORM STRENGTH: 30 MG
     Route: 048
     Dates: start: 202407
  4. TESTOSTERONE [Suspect]
     Active Substance: TESTOSTERONE
     Indication: Hormone therapy
     Route: 065
     Dates: end: 2023
  5. TESTOSTERONE [Suspect]
     Active Substance: TESTOSTERONE
     Indication: Hormone therapy
     Route: 065
     Dates: end: 2024
  6. BUSPIRONE [Concomitant]
     Active Substance: BUSPIRONE HYDROCHLORIDE
     Indication: Depression
  7. HYDROXYZINE [Concomitant]
     Active Substance: HYDROXYZINE HYDROCHLORIDE
     Indication: Multiple allergies
  8. DULOXETINE [Concomitant]
     Active Substance: DULOXETINE
     Indication: Depression
  9. REXULTI [Concomitant]
     Active Substance: BREXPIPRAZOLE
     Indication: Depression
  10. PROPRANOLOL [Suspect]
     Active Substance: PROPRANOLOL HYDROCHLORIDE
     Indication: Autism spectrum disorder
     Route: 048
     Dates: start: 202408, end: 202408
  11. MONTELUKAST [Concomitant]
     Active Substance: MONTELUKAST
     Indication: Asthma
  12. ZYRTEC [Concomitant]
     Active Substance: CETIRIZINE HYDROCHLORIDE
     Indication: Multiple allergies
  13. HYDROCHLOROTHIAZIDE [Concomitant]
     Active Substance: HYDROCHLOROTHIAZIDE
     Indication: Hypertension
  14. LISINOPRIL [Concomitant]
     Active Substance: LISINOPRIL
     Indication: Hypertension
  15. VITAMIN D3 [Concomitant]
     Active Substance: CHOLECALCIFEROL
     Indication: Product used for unknown indication
  16. ALLEGRA [Concomitant]
     Active Substance: FEXOFENADINE HYDROCHLORIDE
     Indication: Multiple allergies
  17. LEVOTHYROXINE [Concomitant]
     Active Substance: LEVOTHYROXINE
     Indication: Hypothyroidism

REACTIONS (11)
  - Uterine haemorrhage [Recovered/Resolved]
  - Gastrooesophageal reflux disease [Recovering/Resolving]
  - Arthralgia [Not Recovered/Not Resolved]
  - Eructation [Recovering/Resolving]
  - Gallbladder disorder [Recovered/Resolved]
  - Nerve compression [Not Recovered/Not Resolved]
  - Neck pain [Not Recovered/Not Resolved]
  - Back pain [Not Recovered/Not Resolved]
  - Dizziness [Not Recovered/Not Resolved]
  - Surgery [Unknown]
  - Rash [Unknown]

NARRATIVE: CASE EVENT DATE: 20220101
